FAERS Safety Report 11525882 (Version 1)
Quarter: 2015Q3

REPORT INFORMATION
  Report Type: Spontaneous
  Country: US (occurrence: US)
  Receive Date: 20150918
  Receipt Date: 20150918
  Transmission Date: 20151125
  Serious: Yes (Other)
  Sender: FDA-Public Use
  Company Number: US-TAKEDA-TPA2012A04631

PATIENT

DRUGS (5)
  1. ACTOS [Suspect]
     Active Substance: PIOGLITAZONE HYDROCHLORIDE
     Indication: TYPE 2 DIABETES MELLITUS
     Dates: start: 2002, end: 20070202
  2. DIABETA [Concomitant]
     Active Substance: GLYBURIDE
     Dates: start: 2003, end: 2006
  3. LANTUS [Concomitant]
     Active Substance: INSULIN GLARGINE
     Dates: start: 2005
  4. LISPRO [Concomitant]
     Active Substance: INSULIN LISPRO
     Dates: start: 2005
  5. METFORMIN [Concomitant]
     Active Substance: METFORMIN HYDROCHLORIDE
     Dates: start: 2003, end: 2007

REACTIONS (1)
  - Bladder cancer [Unknown]

NARRATIVE: CASE EVENT DATE: 2004
